FAERS Safety Report 14347768 (Version 7)
Quarter: 2018Q3

REPORT INFORMATION
  Report Type: Report from Study
  Country: US (occurrence: US)
  Receive Date: 20180103
  Receipt Date: 20180814
  Transmission Date: 20181010
  Serious: Yes (Hospitalization, Other)
  Sender: FDA-Public Use
  Company Number: US-PFIZER INC-2017495444

PATIENT
  Age: 63 Year
  Sex: Female

DRUGS (17)
  1. IBRANCE [Suspect]
     Active Substance: PALBOCICLIB
     Dosage: 125 MG (1 CAPSULE), CYCLIC (ONE CAPSULE ORAL DAILY FOR 21 DAYS THEN OFF FOR SEVEN DAYS)
     Route: 048
  2. COUMADIN [Concomitant]
     Active Substance: WARFARIN SODIUM
     Dosage: UNK
  3. IBRANCE [Suspect]
     Active Substance: PALBOCICLIB
     Dosage: 100 MG, DAILY
     Route: 048
     Dates: start: 20171208
  4. CALCIUM CARBONATE. [Concomitant]
     Active Substance: CALCIUM CARBONATE
     Dosage: 600 MG, 2X/DAY
  5. METFORMIN [Concomitant]
     Active Substance: METFORMIN HYDROCHLORIDE
     Dosage: 100 MG, 2X/DAY
  6. WARFARIN [Concomitant]
     Active Substance: WARFARIN
     Dosage: 5 MG, UNK [ONE TAB ORAL TUESDAY, THURSDAY, SATURDAY, SUNDAY, TAKE IT AT BEDTIME]
     Route: 048
  7. XGEVA [Concomitant]
     Active Substance: DENOSUMAB
     Indication: BREAST CANCER METASTATIC
     Dosage: 120 MG, UNK
     Dates: start: 201710
  8. CYCLOBENZAPRINE. [Concomitant]
     Active Substance: CYCLOBENZAPRINE
     Indication: MUSCLE SPASMS
     Dosage: 10 MG, AS NEEDED [EVERY EIGHT HOURS]
  9. WARFARIN [Concomitant]
     Active Substance: WARFARIN
     Dosage: UNK [1.5 TABLET ORAL MONDAY, WEDNESDAY, FRIDAY, TAKE IT AT BEDTIME]
     Route: 048
  10. IBRANCE [Suspect]
     Active Substance: PALBOCICLIB
     Dosage: 100 MG, DAILY
     Route: 048
     Dates: start: 20171111
  11. PROCHLORPERAZINE. [Concomitant]
     Active Substance: PROCHLORPERAZINE
     Indication: NAUSEA
     Dosage: 10 MG, AS NEEDED [EVERY SIX HOURS FOR SEVEN DAYS]
  12. IBRANCE [Suspect]
     Active Substance: PALBOCICLIB
     Dosage: UNK
     Dates: start: 20171129
  13. COUMADIN [Concomitant]
     Active Substance: WARFARIN SODIUM
     Indication: CEREBROVASCULAR ACCIDENT
     Dosage: UNK
     Dates: end: 20171129
  14. IBRANCE [Suspect]
     Active Substance: PALBOCICLIB
     Indication: BREAST CANCER METASTATIC
     Dosage: 125 MG, DAILY
     Route: 048
     Dates: start: 20171101, end: 20171207
  15. FASLODEX [Concomitant]
     Active Substance: FULVESTRANT
     Indication: BREAST CANCER METASTATIC
     Dosage: 500 MG, UNK
     Dates: start: 201710
  16. NORCO [Concomitant]
     Active Substance: ACETAMINOPHEN\HYDROCODONE BITARTRATE
     Indication: PAIN
     Dosage: UNK UNK, AS NEEDED [5/325, ONE TAB EVERY FIVE HOURS, MAX FIVE TABS PER DAY]
  17. IBRANCE [Suspect]
     Active Substance: PALBOCICLIB
     Dosage: 100 MG, CYCLIC (DAILY DAYS 1?21 EVERY 28 DAYS)
     Route: 048
     Dates: start: 201710

REACTIONS (16)
  - Leukopenia [Not Recovered/Not Resolved]
  - Cytopenia [Recovered/Resolved]
  - Weight decreased [Unknown]
  - Pain [Unknown]
  - Arthralgia [Unknown]
  - Intestinal obstruction [Recovered/Resolved]
  - Nausea [Unknown]
  - Vomiting [Unknown]
  - Neoplasm progression [Unknown]
  - Increased appetite [Unknown]
  - Weight increased [Unknown]
  - Abdominal pain [Recovered/Resolved]
  - Fatigue [Unknown]
  - White blood cell count decreased [Not Recovered/Not Resolved]
  - Alopecia [Unknown]
  - Musculoskeletal stiffness [Unknown]

NARRATIVE: CASE EVENT DATE: 2017
